FAERS Safety Report 6346626-X (Version None)
Quarter: 2009Q3

REPORT INFORMATION
  Report Type: 
  Country: None (occurrence: None)
  Receive Date: 20090828
  Receipt Date: 20090827
  Transmission Date: 20100115
  Serious: Yes (Hospitalization)
  Sender: FDA-Public Use
  Company Number: WAES 0908USA03920

PATIENT
  Age: 65 Year
  Sex: Male

DRUGS (3)
  1. ZETIA [Suspect]
     Indication: HYPERCHOLESTEROLAEMIA
     Dosage: 10 MG/DAILY, PO
     Route: 048
     Dates: start: 20080405
  2. AMLODIPINE BESYLATE [Concomitant]
  3. FENOFIBRATE [Concomitant]

REACTIONS (2)
  - GASTRIC CANCER [None]
  - HEPATIC CANCER METASTATIC [None]
